FAERS Safety Report 12963598 (Version 1)
Quarter: 2016Q4

REPORT INFORMATION
  Report Type: Spontaneous
  Country: FR (occurrence: FR)
  Receive Date: 20161122
  Receipt Date: 20161122
  Transmission Date: 20170207
  Serious: Yes (Other)
  Sender: FDA-Public Use
  Company Number: FR-ROCHE-1857548

PATIENT
  Sex: Female

DRUGS (9)
  1. INEXIUM [Concomitant]
     Active Substance: ESOMEPRAZOLE
     Route: 065
  2. ROACTEMRA [Suspect]
     Active Substance: TOCILIZUMAB
     Indication: RHEUMATOID ARTHRITIS
     Dosage: 8MG/KG
     Route: 042
     Dates: start: 20140318
  3. DIFFU K [Concomitant]
     Active Substance: POTASSIUM CHLORIDE
  4. SPECIAFOLDINE [Concomitant]
     Active Substance: FOLIC ACID
  5. TRIATEC (FRANCE) [Concomitant]
     Active Substance: RAMIPRIL
     Route: 065
  6. DEROXAT [Concomitant]
     Active Substance: PAROXETINE HYDROCHLORIDE
     Route: 065
  7. CALCIDIA [Concomitant]
     Active Substance: CALCIUM POLYCARBOPHIL
  8. CORTANCYL [Concomitant]
     Active Substance: PREDNISONE
     Route: 065
  9. IMETH [Concomitant]
     Active Substance: METHOTREXATE SODIUM
     Indication: RHEUMATOID ARTHRITIS
     Route: 065
     Dates: start: 201304, end: 20160524

REACTIONS (2)
  - Acne [Not Recovered/Not Resolved]
  - Folliculitis [Not Recovered/Not Resolved]

NARRATIVE: CASE EVENT DATE: 201605
